FAERS Safety Report 26204499 (Version 1)
Quarter: 2025Q4

REPORT INFORMATION
  Report Type: Spontaneous
  Country: EU (occurrence: EU)
  Receive Date: 20251226
  Receipt Date: 20251226
  Transmission Date: 20260118
  Serious: Yes (Hospitalization)
  Sender: ROCHE
  Company Number: None

PATIENT
  Age: 36 Month
  Sex: Male
  Weight: 15.5 kg

DRUGS (2)
  1. CELLCEPT [Suspect]
     Active Substance: MYCOPHENOLATE MOFETIL
     Indication: Nephrotic syndrome
     Dosage: 200MG/ML
     Route: 048
     Dates: start: 20251017, end: 20251026
  2. TACROLIMUS GRAN VOOR SUSP 0,2MG / MODIGRAF GRANULAAT V SUSPENSIE IN SA [Concomitant]
     Dosage: SACHET, 0.4 MG
     Route: 048

REACTIONS (3)
  - Vomiting [Recovered/Resolved]
  - Diarrhoea [Recovered/Resolved]
  - Dehydration [Recovered/Resolved]
